FAERS Safety Report 8315389-0 (Version None)
Quarter: 2012Q2

REPORT INFORMATION
  Report Type: 
  Country: None (occurrence: None)
  Receive Date: 20120426
  Receipt Date: 20120423
  Transmission Date: 20120825
  Serious: Yes (Hospitalization)
  Sender: FDA-Public Use
  Company Number: US-B.I. PHARMACEUTICALS,INC./RIDGEFIELD-2012-BP-09211BP

PATIENT
  Sex: Female

DRUGS (10)
  1. PROAIR HFA [Suspect]
     Indication: ASTHMA
     Dosage: 4 PUF
     Route: 055
     Dates: start: 20100101
  2. FLEXERIL [Concomitant]
     Indication: MUSCLE SPASMS
     Route: 048
     Dates: start: 20100101
  3. MICARDIS HCT [Suspect]
     Indication: HYPERTENSION
     Route: 048
     Dates: start: 20090101, end: 20120415
  4. ASPIRIN [Concomitant]
     Indication: PROPHYLAXIS
     Dosage: 81 MG
     Route: 048
  5. QVAR 40 [Suspect]
     Route: 055
     Dates: start: 20110101
  6. FUROSEMIDE [Concomitant]
     Dosage: 40 MG
     Route: 048
  7. HYDROCODONE [Concomitant]
     Indication: NECK PAIN
     Route: 048
  8. SPIRIVA [Concomitant]
     Indication: CHRONIC OBSTRUCTIVE PULMONARY DISEASE
     Dosage: 18 MCG
     Route: 055
     Dates: start: 20120201
  9. QVAR 40 [Suspect]
     Indication: ASTHMA
     Dosage: 4 PUF
     Route: 055
     Dates: start: 20100101
  10. PROAIR HFA [Suspect]
     Route: 055
     Dates: start: 20110101

REACTIONS (3)
  - HYPERTENSION [None]
  - PNEUMONIA [None]
  - DYSPNOEA [None]
